FAERS Safety Report 16709231 (Version 1)
Quarter: 2019Q3

REPORT INFORMATION
  Report Type: Spontaneous
  Country: FR (occurrence: FR)
  Receive Date: 20190816
  Receipt Date: 20190816
  Transmission Date: 20191004
  Serious: Yes (Hospitalization)
  Sender: FDA-Public Use
  Company Number: FR-ZYDUS-039689

PATIENT
  Age: 50 Year
  Sex: Male
  Weight: 94 kg

DRUGS (12)
  1. RAMIPRIL. [Suspect]
     Active Substance: RAMIPRIL
     Indication: HYPERTENSION
     Route: 048
     Dates: end: 201806
  2. SEVELAMER/SEVELAMER HYDROCHLORIDE [Concomitant]
     Indication: BLOOD PHOSPHORUS INCREASED
     Dosage: COMPRIME PELLICULE
     Route: 048
  3. IVABRADINE/IVABRADINE HYDROCHLORIDE [Concomitant]
     Indication: CARDIOVASCULAR DISORDER
     Route: 048
  4. CRESTOR [Concomitant]
     Active Substance: ROSUVASTATIN CALCIUM
     Indication: HYPERCHOLESTEROLAEMIA
  5. BACTRIM [Concomitant]
     Active Substance: SULFAMETHOXAZOLE\TRIMETHOPRIM
     Indication: INFECTION
     Dosage: COMPRESSED
     Route: 048
  6. METOPROLOL TARTRATE. [Concomitant]
     Active Substance: METOPROLOL TARTRATE
     Indication: HYPERTENSION
     Route: 048
  7. LASILIX [Suspect]
     Active Substance: FUROSEMIDE
     Indication: HYPERTENSION
     Dosage: TABLET BREACKABLE
     Route: 048
  8. SOLUPRED [Concomitant]
     Indication: ADRENOCORTICAL STEROID THERAPY
     Dosage: EFFERVESCENT TABLET
     Route: 048
  9. MYFORTIC [Suspect]
     Active Substance: MYCOPHENOLATE SODIUM
     Indication: NEPHROTIC SYNDROME
     Dosage: GASTRO-RESISTANT FILM-COATED TABLET
     Route: 048
     Dates: start: 20180410, end: 201806
  10. KARDEGIC [Concomitant]
     Active Substance: ASPIRIN DL-LYSINE
     Indication: PLATELET AGGREGATION INHIBITION
     Dosage: POWDER FOR ORAL SOLUTION IN SACHET-DOSE
     Route: 048
  11. INEXIUM [Concomitant]
     Active Substance: ESOMEPRAZOLE
     Indication: GASTROOESOPHAGEAL REFLUX DISEASE
     Dosage: GASTRO-RESISTANT TABLET
     Route: 048
  12. KAYEXALATE [Concomitant]
     Active Substance: SODIUM POLYSTYRENE SULFONATE
     Indication: HYPERKALAEMIA
     Dosage: POWDER FOR ORAL AND RECTAL SUSPENSION
     Route: 048

REACTIONS (5)
  - Hyperkalaemia [Recovered/Resolved]
  - Hypocalcaemia [Recovered/Resolved]
  - Metabolic acidosis [Recovered/Resolved]
  - Diarrhoea [Recovered/Resolved]
  - Acute kidney injury [Recovered/Resolved]

NARRATIVE: CASE EVENT DATE: 201804
